FAERS Safety Report 5647041-4 (Version None)
Quarter: 2008Q1

REPORT INFORMATION
  Report Type: 
  Country: None (occurrence: None)
  Receive Date: 20080228
  Receipt Date: 20080228
  Transmission Date: 20080703
  Serious: Yes (Other)
  Sender: FDA-Public Use
  Company Number: None

PATIENT
  Age: 54 Year
  Sex: Male
  Weight: 102.0593 kg

DRUGS (1)
  1. OXYMETAZOLINE HCL [Suspect]
     Indication: SINUS CONGESTION
     Dosage: 2-3 SPRAYS EVERY 12 HOURS NASAL
     Route: 045
     Dates: start: 20080221, end: 20080223

REACTIONS (2)
  - ANOSMIA [None]
  - DYSGEUSIA [None]
